FAERS Safety Report 4609061-8 (Version None)
Quarter: 2005Q2

REPORT INFORMATION
  Report Type: 
  Country: None (occurrence: None)
  Receive Date: 20050228
  Receipt Date: 20040723
  Transmission Date: 20051028
  Serious: Yes (Hospitalization)
  Sender: FDA-Public Use
  Company Number: 1727

PATIENT
  Age: 57 Year
  Sex: Male
  Weight: 87.0906 kg

DRUGS (4)
  1. TARGRETIN [Suspect]
     Indication: NON-SMALL CELL LUNG CANCER
     Dosage: 375 MG DAILY;PO
     Route: 048
     Dates: start: 20040224, end: 20040629
  2. ATORVASTATIN CALCIUM [Concomitant]
  3. FENOFIBRATE [Concomitant]
  4. VENLAFAXINE HCL [Concomitant]

REACTIONS (1)
  - BACTERIAL INFECTION [None]
